FAERS Safety Report 4554523-5 (Version None)
Quarter: 2004Q4

REPORT INFORMATION
  Report Type: 
  Country: None (occurrence: None)
  Receive Date: 20041227
  Receipt Date: 20041109
  Transmission Date: 20050328
  Serious: No
  Sender: FDA-Public Use
  Company Number: 0204004

PATIENT
  Age: 78 Year
  Sex: Female

DRUGS (4)
  1. DEPODUR (TM) [Suspect]
     Indication: POSTOPERATIVE ANALGESIA
     Dosage: (15 MG, ONCE), EPIDURAL
     Route: 008
  2. VICODIN [Concomitant]
  3. PERCOCET [Concomitant]
  4. DILAUDID [Concomitant]

REACTIONS (2)
  - NAUSEA [None]
  - RESPIRATORY DEPRESSION [None]
